FAERS Safety Report 4720973-7 (Version None)
Quarter: 2005Q3

REPORT INFORMATION
  Report Type: 
  Country: None (occurrence: None)
  Receive Date: 20050720
  Receipt Date: 20050708
  Transmission Date: 20060218
  Serious: Yes (Hospitalization)
  Sender: FDA-Public Use
  Company Number: 215942

PATIENT
  Age: 60 Year
  Sex: Female
  Weight: 53 kg

DRUGS (10)
  1. RITUXAN [Suspect]
     Indication: NON-HODGKIN'S LYMPHOMA
     Dosage: 545 MG
     Dates: start: 20050118, end: 20050318
  2. CYCLOPHOSPHAMIDE [Suspect]
     Indication: NON-HODGKIN'S LYMPHOMA
     Dosage: 1087 MG, INTRAVENOUS
     Route: 042
     Dates: start: 20050118, end: 20050414
  3. DOXORUBICIN HCL [Suspect]
     Indication: NON-HODGKIN'S LYMPHOMA
     Dosage: 72 MG, INTRAVENOUS
     Route: 042
     Dates: start: 20050118, end: 20050414
  4. VINCRISTINE [Suspect]
     Indication: NON-HODGKIN'S LYMPHOMA
     Dosage: 1087 MG, INTRAVENOUS
     Route: 042
     Dates: start: 20050118, end: 20050415
  5. IBUPROFEN [Concomitant]
  6. DEXCHLORPHENIRAMINE MALEATE [Concomitant]
  7. FAMOTIDINE [Concomitant]
  8. POLAPREZINC (POLAPREZINC) [Concomitant]
  9. MAGNESIUM OXIDE (MAGNESIUM OXIDE) [Concomitant]
  10. URSODIOL [Concomitant]

REACTIONS (4)
  - ANAEMIA [None]
  - DIZZINESS [None]
  - NEUTROPHIL COUNT DECREASED [None]
  - WHITE BLOOD CELL COUNT DECREASED [None]
